FAERS Safety Report 19673665 (Version 1)
Quarter: 2021Q3

REPORT INFORMATION
  Report Type: Spontaneous
  Country: US (occurrence: US)
  Receive Date: 20210806
  Receipt Date: 20210806
  Transmission Date: 20211014
  Serious: Yes (Other)
  Sender: FDA-Public Use
  Company Number: None

PATIENT
  Age: 65 Year
  Sex: Female
  Weight: 74 kg

DRUGS (2)
  1. BAMLANIVIMAB 700 MG [Suspect]
     Active Substance: BAMLANIVIMAB
     Indication: COVID-19
     Route: 042
  2. ETESEVIMAB 1400 MG [Suspect]
     Active Substance: ETESEVIMAB
     Indication: COVID-19
     Route: 042

REACTIONS (3)
  - Throat irritation [None]
  - Cough [None]
  - Injection site pruritus [None]

NARRATIVE: CASE EVENT DATE: 20210625
